FAERS Safety Report 9648072 (Version 4)
Quarter: 2013Q4

REPORT INFORMATION
  Report Type: Spontaneous
  Country: JP (occurrence: JP)
  Receive Date: 20131028
  Receipt Date: 20131206
  Transmission Date: 20140711
  Serious: Yes (Hospitalization)
  Sender: FDA-Public Use
  Company Number: JP-JNJFOC-20131003973

PATIENT
  Age: 82 Year
  Sex: Female

DRUGS (3)
  1. RISPERDAL [Suspect]
     Indication: RESTLESSNESS
     Dosage: AT NIGHT
     Route: 048
  2. MAGNESIUM OXIDE [Concomitant]
     Route: 048
  3. BROTIZOLAM [Concomitant]
     Route: 048

REACTIONS (3)
  - Joint dislocation [Recovered/Resolved]
  - Protein total decreased [Unknown]
  - Off label use [Unknown]
